FAERS Safety Report 19035001 (Version 1)
Quarter: 2021Q1

REPORT INFORMATION
  Report Type: Spontaneous
  Country: US (occurrence: US)
  Receive Date: 20210320
  Receipt Date: 20210320
  Transmission Date: 20210420
  Serious: No
  Sender: FDA-Public Use
  Company Number: US-DRREDDYS-USA/USA/21/0132755

PATIENT
  Age: 36 Year
  Sex: Male

DRUGS (1)
  1. ZENATANE [Suspect]
     Active Substance: ISOTRETINOIN
     Indication: ACNE
     Dosage: RMA ISSUE DATE:1 10/9/2020 2:45:47 PM,2/2/2021 5:14:11 PM
     Route: 048

REACTIONS (1)
  - Therapy cessation [Unknown]
